FAERS Safety Report 6199432-3 (Version None)
Quarter: 2009Q2

REPORT INFORMATION
  Report Type: 
  Country: None (occurrence: None)
  Receive Date: 20090522
  Receipt Date: 20090520
  Transmission Date: 20091009
  Serious: Yes (Other)
  Sender: FDA-Public Use
  Company Number: US-BRISTOL-MYERS SQUIBB COMPANY-14632392

PATIENT
  Age: 69 Year
  Sex: Male
  Weight: 68 kg

DRUGS (12)
  1. HYDREA [Suspect]
  2. ALLOPURINOL [Concomitant]
  3. AMLODIPINE [Concomitant]
  4. CIPRO [Concomitant]
  5. DOXYCYCLINE [Concomitant]
  6. FLUCONAZOLE [Concomitant]
  7. LEVOTHYROXINE SODIUM [Concomitant]
  8. MAGNESIUM SULFATE [Concomitant]
  9. PROTEIN [Concomitant]
  10. DILAUDID [Concomitant]
  11. SODIUM CITRATE [Concomitant]
  12. IMODIUM [Concomitant]

REACTIONS (4)
  - EPISTAXIS [None]
  - RECTAL HAEMORRHAGE [None]
  - RESPIRATORY DISTRESS [None]
  - SEPSIS [None]
